FAERS Safety Report 9925725 (Version 1)
Quarter: 2014Q1

REPORT INFORMATION
  Report Type: Spontaneous
  Country: US (occurrence: None)
  Receive Date: 20140221
  Receipt Date: 20140221
  Transmission Date: 20141002
  Serious: No
  Sender: FDA-Public Use
  Company Number: 14AE008

PATIENT
  Age: 54 Year
  Sex: Female
  Weight: 87.09 kg

DRUGS (1)
  1. EQUATE DOXYLAMINE SUCCINATE 25MG TABLETS [Suspect]
     Indication: SLEEP DISORDER
     Route: 048
     Dates: start: 20140131, end: 20140207

REACTIONS (1)
  - Blood pressure fluctuation [None]
